FAERS Safety Report 4691467-2 (Version None)
Quarter: 2005Q2

REPORT INFORMATION
  Report Type: 
  Country: None (occurrence: None)
  Receive Date: 20050613
  Receipt Date: 20050310
  Transmission Date: 20051028
  Serious: Yes (Other)
  Sender: FDA-Public Use
  Company Number: S05-USA-01359-01

PATIENT
  Age: 34 Year
  Sex: Female

DRUGS (2)
  1. LEXAPRO [Suspect]
     Indication: ANXIETY
     Dosage: 10 MG QD PO
     Route: 048
     Dates: start: 20030101
  2. MOTRIN [Concomitant]

REACTIONS (1)
  - PLATELET COUNT DECREASED [None]
